FAERS Safety Report 7720891-6 (Version None)
Quarter: 2011Q3

REPORT INFORMATION
  Report Type: 
  Country: None (occurrence: None)
  Receive Date: 20110831
  Receipt Date: 20110825
  Transmission Date: 20111222
  Serious: Yes (Hospitalization, Other)
  Sender: FDA-Public Use
  Company Number: GB-B.I. PHARMACEUTICALS,INC./RIDGEFIELD-2011-UK-00864UK

PATIENT
  Age: 85 Year
  Sex: Male
  Weight: 68 kg

DRUGS (9)
  1. SENNA [Concomitant]
  2. RAMIPRIL [Concomitant]
  3. PRADAXA [Suspect]
     Indication: THROMBOSIS PROPHYLAXIS
     Dosage: 150 MG
     Route: 048
     Dates: start: 20110727, end: 20110731
  4. LACTULOSE [Concomitant]
  5. CALCIUM RESONIUM [Concomitant]
  6. FLUTICASONE PROPIONATE [Concomitant]
  7. DIHYDROCODEINE BITARTRATE INJ [Concomitant]
  8. ACETAMINOPHEN [Concomitant]
  9. FOLIC ACID [Concomitant]

REACTIONS (2)
  - RENAL IMPAIRMENT [None]
  - GASTROINTESTINAL HAEMORRHAGE [None]
